FAERS Safety Report 23689519 (Version 2)
Quarter: 2024Q3

REPORT INFORMATION
  Report Type: Spontaneous
  Country: IN (occurrence: IN)
  Receive Date: 20240331
  Receipt Date: 20240802
  Transmission Date: 20241016
  Serious: Yes (Other)
  Sender: Steriscience PTE
  Company Number: IN-STERISCIENCE B.V.-2024-ST-000330

PATIENT
  Age: 69 Year
  Sex: Male

DRUGS (8)
  1. GANCICLOVIR SODIUM [Suspect]
     Active Substance: GANCICLOVIR SODIUM
     Indication: Cytomegalovirus chorioretinitis
     Dosage: MULTIPLE IN HIS RIGHT EYE
  2. GANCICLOVIR SODIUM [Suspect]
     Active Substance: GANCICLOVIR SODIUM
     Dosage: 13 INJECTIONS OF GANCICLOVIR 2.5MG/0.05ML IN THE RE
  3. GANCICLOVIR SODIUM [Suspect]
     Active Substance: GANCICLOVIR SODIUM
     Dosage: 14 INTRAVITREAL GANCICLOVIR INJECTIONS 2.5 MG/0.0 5 ML FOR RE OVER THE NEXT 3MONTHS
  4. MYCOPHENOLATE MOFETIL [Concomitant]
     Active Substance: MYCOPHENOLATE MOFETIL
     Indication: Granulomatosis with polyangiitis
     Dosage: 1 GRAM, BID
     Route: 065
  5. METHOTREXATE [Concomitant]
     Active Substance: METHOTREXATE
     Indication: Granulomatosis with polyangiitis
     Dosage: 15 MILLIGRAM, ONCE WEEKLY
     Route: 065
  6. RITUXIMAB [Concomitant]
     Active Substance: RITUXIMAB
     Indication: Granulomatosis with polyangiitis
     Dosage: EVERY 6 MONTHS
     Route: 065
  7. DEFLAZACORT [Concomitant]
     Active Substance: DEFLAZACORT
     Indication: Granulomatosis with polyangiitis
     Dosage: 3 MILLIGRAM, OD IN TAPERING DOSE
  8. VALGANCICLOVIR [Concomitant]
     Active Substance: VALGANCICLOVIR
     Indication: Cytomegalovirus chorioretinitis
     Dosage: 900 MILLIGRAM, BID
     Route: 048

REACTIONS (3)
  - Retinal toxicity [Unknown]
  - Retinal depigmentation [Unknown]
  - Off label use [Unknown]
